FAERS Safety Report 6404306-6 (Version None)
Quarter: 2009Q4

REPORT INFORMATION
  Report Type: 
  Country: None (occurrence: None)
  Receive Date: 20091016
  Receipt Date: 20091014
  Transmission Date: 20100525
  Serious: Yes (Hospitalization)
  Sender: FDA-Public Use
  Company Number: B0597714A

PATIENT
  Sex: Female

DRUGS (2)
  1. CLAMOXYL [Suspect]
     Route: 048
     Dates: start: 20091005, end: 20091009
  2. ASPEGIC 1000 [Concomitant]

REACTIONS (5)
  - ANGIOEDEMA [None]
  - CONDITION AGGRAVATED [None]
  - GENERALISED OEDEMA [None]
  - HYPERSENSITIVITY [None]
  - RASH MACULAR [None]
